FAERS Safety Report 6997302-1 (Version None)
Quarter: 2010Q3

REPORT INFORMATION
  Report Type: 
  Country: None (occurrence: None)
  Receive Date: 20100918
  Receipt Date: 20090930
  Transmission Date: 20110219
  Serious: Yes (Disabling)
  Sender: FDA-Public Use
  Company Number: US-WYE-H11297809

PATIENT
  Sex: Male
  Weight: 90.8 kg

DRUGS (3)
  1. EFFEXOR [Suspect]
     Indication: DEPRESSION
     Route: 048
     Dates: start: 20090101, end: 20090801
  2. DIAZEPAM [Concomitant]
     Indication: ANXIETY
     Route: 048
     Dates: start: 20090101
  3. SEROQUEL [Concomitant]
     Indication: BIPOLAR II DISORDER
     Dosage: ^200 MG, 1/2-1 QHS^
     Route: 048
     Dates: start: 20070101

REACTIONS (1)
  - GLAUCOMA [None]
